FAERS Safety Report 17067780 (Version 2)
Quarter: 2019Q4

REPORT INFORMATION
  Report Type: Spontaneous
  Country: CN (occurrence: CN)
  Receive Date: 20191122
  Receipt Date: 20191218
  Transmission Date: 20200122
  Serious: Yes (Other)
  Sender: FDA-Public Use
  Company Number: CN-VALIDUS PHARMACEUTICALS LLC-CN-2019VAL000801

PATIENT

DRUGS (1)
  1. ROCALTROL [Suspect]
     Active Substance: CALCITRIOL
     Indication: THYROID CANCER
     Dosage: 1 DF, 3 IN 1 D
     Route: 048

REACTIONS (4)
  - Off label use [Unknown]
  - Intentional product use issue [Unknown]
  - Seizure [Recovering/Resolving]
  - Drug ineffective [Unknown]
